FAERS Safety Report 16883345 (Version 1)
Quarter: 2019Q4

REPORT INFORMATION
  Report Type: Other
  Country: IT (occurrence: IT)
  Receive Date: 20191004
  Receipt Date: 20191004
  Transmission Date: 20200122
  Serious: Yes (Other)
  Sender: FDA-Public Use
  Company Number: IT-CELLTRION INC.-2019IT024923

PATIENT

DRUGS (12)
  1. LASIX [Concomitant]
     Active Substance: FUROSEMIDE
     Dosage: UNK
     Route: 065
     Dates: start: 20190716, end: 20190723
  2. ONDASETRON [ONDANSETRON] [Concomitant]
     Dosage: UNK
     Route: 065
     Dates: start: 20190612
  3. CYTOXAN [Suspect]
     Active Substance: CYCLOPHOSPHAMIDE
     Indication: BREAST CANCER
     Dosage: 926 MG EVERY 3 WEEKS (MOST RECENT DOSE: 10/MAY/2019)
     Route: 042
     Dates: start: 20190308
  4. ELLENCE [Suspect]
     Active Substance: EPIRUBICIN HYDROCHLORIDE
     Indication: BREAST CANCER
     Dosage: 138 MG EVERY 3 WEEKS (MOST RECENT DOSE: 10/MAY/2019)
     Route: 042
     Dates: start: 20190308
  5. DELTACORTENE [Concomitant]
     Active Substance: PREDNISONE
     Dosage: UNK
     Route: 065
     Dates: start: 20190611
  6. CLORFENAMINA [CHLORPHENAMINE] [Concomitant]
     Dosage: UNK
     Route: 065
     Dates: start: 20190612
  7. TAXOL [Suspect]
     Active Substance: PACLITAXEL
     Indication: BREAST CANCER
     Dosage: 80 MG/M2 EVERY WEEK (MOST RECENT DOSE PRIOR TO THE EVENT: 23/JUL/2019 AND 06/AUG/2019)
     Route: 042
     Dates: start: 20190612
  8. TRASTUZUMAB (UNKNOWN) [Suspect]
     Active Substance: TRASTUZUMAB
     Indication: BREAST CANCER
     Dosage: 4 MG/KG (MOST RECENT DOSE PRIOR TO THE EVENT: 18/JUN/2019)
     Route: 042
     Dates: start: 20190612
  9. METILPREDNISOLONE [Concomitant]
     Active Substance: METHYLPREDNISOLONE
     Dosage: UNK
     Route: 065
     Dates: start: 20190612
  10. RANITIDINE. [Concomitant]
     Active Substance: RANITIDINE
     Dosage: UNK
     Route: 065
     Dates: start: 20190612
  11. PLASIL [METOCLOPRAMIDE] [Concomitant]
     Dosage: UNK
     Route: 065
     Dates: start: 20190613
  12. OMEPRAZOL [OMEPRAZOLE] [Concomitant]
     Active Substance: OMEPRAZOLE
     Dosage: UNK
     Route: 065
     Dates: start: 20190308

REACTIONS (2)
  - Neurotoxicity [Not Recovered/Not Resolved]
  - Neurotoxicity [Recovered/Resolved]

NARRATIVE: CASE EVENT DATE: 20190723
